FAERS Safety Report 8321046-7 (Version None)
Quarter: 2012Q2

REPORT INFORMATION
  Report Type: 
  Country: None (occurrence: None)
  Receive Date: 20120430
  Receipt Date: 20120426
  Transmission Date: 20120825
  Serious: Yes (Other)
  Sender: FDA-Public Use
  Company Number: PHFR2012IE002041

PATIENT
  Sex: Male
  Weight: 85.6 kg

DRUGS (10)
  1. VITAMIN D [Concomitant]
     Dosage: UNK UKN, UNK
     Route: 048
  2. AZOPT [Concomitant]
     Route: 061
  3. GALFER [Concomitant]
     Indication: IRON DEFICIENCY
     Dosage: 305 MG, DAILY
     Route: 048
  4. GLUCOPHAGE [Concomitant]
     Indication: DIABETES MELLITUS
     Dosage: 850 MG, TID
  5. LUMIGAN [Concomitant]
     Dosage: 0.3 MG, DAILY
  6. LUMIGAN [Concomitant]
     Dosage: 0.3 MG, DAILY
  7. FLUTICASONE PROPIONATE/SALMETEROL [Concomitant]
     Indication: ASTHMA
     Dosage: UNK UKN, UNK
  8. DIAMICRON MR [Concomitant]
     Indication: DIABETES MELLITUS
     Dosage: 120 MG, UNK
  9. COMBIVENT [Concomitant]
     Indication: ASTHMA
     Dosage: UNK UKN, UNK
  10. CLOZARIL [Suspect]
     Indication: SCHIZOPHRENIA
     Dosage: 562.5 MG, DAILY
     Route: 048
     Dates: start: 20030603

REACTIONS (5)
  - INFLUENZA [None]
  - C-REACTIVE PROTEIN INCREASED [None]
  - LOWER RESPIRATORY TRACT INFECTION [None]
  - WHITE BLOOD CELL COUNT INCREASED [None]
  - HAEMOGLOBIN DECREASED [None]
